FAERS Safety Report 21575844 (Version 1)
Quarter: 2022Q4

REPORT INFORMATION
  Report Type: Other
  Country: DE (occurrence: None)
  Receive Date: 20221110
  Receipt Date: 20221110
  Transmission Date: 20230112
  Serious: No
  Sender: FDA-Public Use
  Company Number: DE-ROCHE-2904319

PATIENT
  Age: 36 Year
  Sex: Female

DRUGS (1)
  1. OCREVUS [Suspect]
     Active Substance: OCRELIZUMAB
     Indication: Relapsing-remitting multiple sclerosis
     Route: 042
     Dates: start: 20210318

REACTIONS (9)
  - Dyspnoea [Recovered/Resolved]
  - Erythema [Recovered/Resolved]
  - Paraesthesia [Recovered/Resolved]
  - Disturbance in attention [Recovered/Resolved]
  - Headache [Recovered/Resolved]
  - Fall [Unknown]
  - Haematoma [Recovered/Resolved]
  - Pain [Recovered/Resolved]
  - COVID-19 [Recovered/Resolved]

NARRATIVE: CASE EVENT DATE: 20210318
